FAERS Safety Report 10018227 (Version 1)
Quarter: 2014Q1

REPORT INFORMATION
  Report Type: Spontaneous
  Country: US (occurrence: US)
  Receive Date: 20140318
  Receipt Date: 20140318
  Transmission Date: 20141002
  Serious: Yes (Other)
  Sender: FDA-Public Use
  Company Number: US-BRISTOL-MYERS SQUIBB COMPANY-19427525

PATIENT
  Age: 86 Year
  Sex: Male

DRUGS (6)
  1. ERBITUX SOLN FOR INF [Suspect]
     Indication: HEAD AND NECK CANCER
     Route: 042
     Dates: start: 201309
  2. BENADRYL [Concomitant]
     Indication: PREMEDICATION
  3. DECADRON [Concomitant]
     Indication: PREMEDICATION
  4. TYLENOL [Concomitant]
     Indication: PREMEDICATION
  5. ZANTAC [Concomitant]
     Indication: PREMEDICATION
  6. ALBUTEROL INHALER [Concomitant]
     Indication: PREMEDICATION

REACTIONS (1)
  - Infusion related reaction [Recovering/Resolving]
